FAERS Safety Report 19445276 (Version 1)
Quarter: 2021Q2

REPORT INFORMATION
  Report Type: Spontaneous
  Country: JP (occurrence: JP)
  Receive Date: 20210622
  Receipt Date: 20210622
  Transmission Date: 20210717
  Serious: Yes (Hospitalization, Other)
  Sender: FDA-Public Use
  Company Number: JP-AMGEN-JPNSP2021092671

PATIENT
  Age: 72 Year
  Sex: Male

DRUGS (10)
  1. DOCETAXEL. [Suspect]
     Active Substance: DOCETAXEL
     Indication: OESOPHAGEAL CARCINOMA
     Dosage: 113 MG
     Route: 042
     Dates: start: 20210204, end: 20210204
  2. TAKECAB [Concomitant]
     Active Substance: VONOPRAZAN FUMARATE
     Indication: PRODUCT USED FOR UNKNOWN INDICATION
     Dosage: UNK
     Route: 048
  3. CISPLATIN. [Suspect]
     Active Substance: CISPLATIN
     Indication: OESOPHAGEAL CARCINOMA
     Dosage: 90 MG
     Route: 042
     Dates: start: 20210204, end: 20210204
  4. ELIQUIS [Concomitant]
     Active Substance: APIXABAN
     Indication: PRODUCT USED FOR UNKNOWN INDICATION
     Dosage: UNK
     Route: 048
  5. CILNIDIPINE [Concomitant]
     Active Substance: CILNIDIPINE
     Indication: PRODUCT USED FOR UNKNOWN INDICATION
     Dosage: UNK
     Route: 048
  6. AZILVA [Concomitant]
     Active Substance: AZILSARTAN KAMEDOXOMIL
     Indication: PRODUCT USED FOR UNKNOWN INDICATION
     Dosage: UNK
     Route: 048
  7. FLUOROURACIL. [Suspect]
     Active Substance: FLUOROURACIL
     Indication: OESOPHAGEAL CARCINOMA
     Dosage: 1210 MG, QD
     Route: 042
     Dates: start: 20210204, end: 20210209
  8. G?LASTA [Suspect]
     Active Substance: PEGFILGRASTIM
     Indication: COLONY STIMULATING FACTOR THERAPY
     Dosage: 3.6 MG
     Route: 058
     Dates: start: 20210206, end: 20210206
  9. ALLOPURINOL. [Concomitant]
     Active Substance: ALLOPURINOL
     Indication: PRODUCT USED FOR UNKNOWN INDICATION
     Dosage: UNK
     Route: 048
  10. BISOPROLOL FUMARATE. [Concomitant]
     Active Substance: BISOPROLOL FUMARATE
     Indication: PRODUCT USED FOR UNKNOWN INDICATION
     Dosage: UNK
     Route: 048

REACTIONS (2)
  - Bacteraemia [Recovering/Resolving]
  - Chondrocalcinosis pyrophosphate [Recovered/Resolved]

NARRATIVE: CASE EVENT DATE: 20210216
